FAERS Safety Report 15962351 (Version 5)
Quarter: 2020Q2

REPORT INFORMATION
  Report Type: Spontaneous
  Country: US (occurrence: US)
  Receive Date: 20190214
  Receipt Date: 20200619
  Transmission Date: 20200713
  Serious: Yes (Other)
  Sender: FDA-Public Use
  Company Number: US-PFIZER INC-2019062757

PATIENT
  Age: 85 Year
  Sex: Female

DRUGS (2)
  1. LYRICA [Suspect]
     Active Substance: PREGABALIN
     Indication: NECK PAIN
  2. LYRICA [Suspect]
     Active Substance: PREGABALIN
     Indication: HEADACHE
     Dosage: 75 MG, 1X/DAY (1 CAPSULE 1 TO 3 HOURS BEFORE BEDTIME IN THE EVENING ONCE A DAY 90 DAYS)

REACTIONS (2)
  - Speech disorder [Unknown]
  - Paralysis [Recovering/Resolving]
